FAERS Safety Report 11425890 (Version 1)
Quarter: 2015Q3

REPORT INFORMATION
  Report Type: Spontaneous
  Country: US (occurrence: US)
  Receive Date: 20150821
  Receipt Date: 20150821
  Transmission Date: 20151125
  Serious: No
  Sender: FDA-Public Use
  Company Number: US-ELI_LILLY_AND_COMPANY-US201304003076

PATIENT
  Sex: Female

DRUGS (5)
  1. ADCIRCA [Suspect]
     Active Substance: TADALAFIL
     Dosage: 20 MG, BID
     Dates: start: 20130315
  2. LETAIRIS [Concomitant]
     Active Substance: AMBRISENTAN
  3. ADCIRCA [Suspect]
     Active Substance: TADALAFIL
     Indication: RESPIRATORY DISORDER
     Dosage: 20 MG, QD
  4. ASPIRIN. [Concomitant]
     Active Substance: ASPIRIN
  5. ANTIHYPERTENSIVES [Concomitant]
     Active Substance: UNSPECIFIED INGREDIENT

REACTIONS (5)
  - Vomiting [Unknown]
  - Intentional product misuse [Unknown]
  - Nausea [Unknown]
  - Heart rate increased [Unknown]
  - Nasal congestion [Unknown]
